FAERS Safety Report 9840472 (Version 2)
Quarter: 2014Q1

REPORT INFORMATION
  Report Type: Spontaneous
  Country: GB (occurrence: GB)
  Receive Date: 20140124
  Receipt Date: 20140319
  Transmission Date: 20141002
  Serious: Yes (Other)
  Sender: FDA-Public Use
  Company Number: GB-JNJFOC-20140110927

PATIENT
  Age: 30 Year
  Sex: Female
  Weight: 68 kg

DRUGS (3)
  1. REMICADE [Suspect]
     Indication: CROHN^S DISEASE
     Dosage: 1ST INDUCTION DOSE
     Route: 042
     Dates: start: 20131126
  2. REMICADE [Suspect]
     Indication: CROHN^S DISEASE
     Dosage: 2ND INDUCTION DOSE
     Route: 042
     Dates: start: 20131210, end: 20131211
  3. CONTRACEPTIVE [Concomitant]
     Indication: CONTRACEPTION
     Route: 065

REACTIONS (5)
  - Dyspnoea [Recovered/Resolved]
  - Nausea [Recovered/Resolved]
  - Flushing [Recovered/Resolved]
  - Tachycardia [Recovered/Resolved]
  - Drug specific antibody present [Unknown]
